FAERS Safety Report 6083887-9 (Version None)
Quarter: 2009Q1

REPORT INFORMATION
  Report Type: 
  Country: None (occurrence: None)
  Receive Date: 20090217
  Receipt Date: 20090206
  Transmission Date: 20090719
  Serious: Yes (Death, Other)
  Sender: FDA-Public Use
  Company Number: 2009US000314

PATIENT
  Age: 4 Year

DRUGS (4)
  1. PROGRAF [Suspect]
     Indication: INTESTINAL TRANSPLANT
  2. PREDNISONE TAB [Concomitant]
  3. AZATHIOPRINE [Concomitant]
  4. ANTI-THYMOCYTE GLOBULIN RABBIT NOS [Concomitant]

REACTIONS (9)
  - EMPYEMA [None]
  - EPSTEIN-BARR VIRUS ASSOCIATED LYMPHOPROLIFERATIVE DISORDER [None]
  - FUNGAL INFECTION [None]
  - INTESTINE TRANSPLANT REJECTION [None]
  - MULTI-ORGAN FAILURE [None]
  - ORGAN TRANSPLANT [None]
  - OSTEOMYELITIS FUNGAL [None]
  - RENAL TRANSPLANT [None]
  - SURGICAL PROCEDURE REPEATED [None]
